FAERS Safety Report 8906188 (Version 1)
Quarter: 2012Q4

REPORT INFORMATION
  Report Type: Spontaneous
  Country: US (occurrence: None)
  Receive Date: 20121109
  Receipt Date: 20121109
  Transmission Date: 20130627
  Serious: Yes (Other)
  Sender: FDA-Public Use
  Company Number: None

PATIENT
  Sex: Female
  Weight: 63.96 kg

DRUGS (1)
  1. SUTENT [Suspect]
     Indication: RENAL CELL CANCER
     Dosage: 50 mg 4 po daily
     Route: 048
     Dates: start: 20120730, end: 20120813

REACTIONS (1)
  - Hepatitis toxic [None]
